FAERS Safety Report 6889312-X (Version None)
Quarter: 2010Q3

REPORT INFORMATION
  Report Type: 
  Country: None (occurrence: None)
  Receive Date: 20100730
  Receipt Date: 20080204
  Transmission Date: 20110219
  Serious: No
  Sender: FDA-Public Use
  Company Number: US-PFIZER INC-2008008283

PATIENT
  Sex: Male
  Weight: 102.27 kg

DRUGS (5)
  1. LIPITOR [Suspect]
     Indication: BLOOD CHOLESTEROL INCREASED
     Dates: start: 19980101
  2. ZETIA [Concomitant]
  3. ALTACE [Concomitant]
  4. LEVOXYL [Concomitant]
  5. INSULIN [Concomitant]

REACTIONS (2)
  - RASH [None]
  - RASH PRURITIC [None]
